FAERS Safety Report 9007815 (Version 1)
Quarter: 2013Q1

REPORT INFORMATION
  Report Type: Spontaneous
  Country: US (occurrence: US)
  Receive Date: 20130111
  Receipt Date: 20130111
  Transmission Date: 20140127
  Serious: Yes (Hospitalization)
  Sender: FDA-Public Use
  Company Number: US-009507513-1301XAA003218

PATIENT
  Age: 49 Year
  Sex: Female

DRUGS (4)
  1. SINGULAIR [Suspect]
     Indication: ASTHMA
     Route: 048
  2. ATROVENT [Suspect]
  3. VENTOLIN (ALBUTEROL) [Suspect]
     Dosage: ROUTE = INHALATION
     Route: 055
  4. SERETIDE [Suspect]
     Dosage: 2 DF(PUFF), BID, INHALATION
     Route: 055

REACTIONS (5)
  - Wheezing [Unknown]
  - Dyspnoea [Unknown]
  - Cough [Unknown]
  - Chest discomfort [Unknown]
  - Asthma [Unknown]
